FAERS Safety Report 18209633 (Version 2)
Quarter: 2020Q4

REPORT INFORMATION
  Report Type: Spontaneous
  Country: US (occurrence: US)
  Receive Date: 20200828
  Receipt Date: 20201009
  Transmission Date: 20210113
  Serious: Yes (Other)
  Sender: FDA-Public Use
  Company Number: US-SA-2018SA069101

PATIENT

DRUGS (8)
  1. DOCETAXEL. [Suspect]
     Active Substance: DOCETAXEL
     Dosage: (60-95MG),Q3W
     Route: 065
     Dates: start: 20080801, end: 20080801
  2. DOCETAXEL. [Suspect]
     Active Substance: DOCETAXEL
     Indication: BREAST CANCER FEMALE
     Dosage: (60-95MG),Q3W
     Route: 065
     Dates: start: 20080602, end: 20080602
  3. DOCETAXEL. [Suspect]
     Active Substance: DOCETAXEL
     Dosage: (60-95MG),Q3W
     Route: 065
     Dates: start: 20080822, end: 20080822
  4. ADRIAMYCIN [Concomitant]
     Active Substance: DOXORUBICIN HYDROCHLORIDE
     Indication: BREAST CANCER FEMALE
     Dosage: UNK
     Route: 065
  5. DOCETAXEL. [Suspect]
     Active Substance: DOCETAXEL
     Dosage: (60-95 MG) Q3W
     Route: 065
     Dates: start: 20080912, end: 20080912
  6. DOCETAXEL. [Suspect]
     Active Substance: DOCETAXEL
     Dosage: (60-95MG),Q3W
     Route: 065
     Dates: start: 20080623, end: 20080623
  7. DOCETAXEL. [Suspect]
     Active Substance: DOCETAXEL
     Dosage: (60-95MG),Q3W
     Route: 065
     Dates: start: 20080711, end: 20080711
  8. NEOSAR [Concomitant]
     Active Substance: CYCLOPHOSPHAMIDE
     Indication: BREAST CANCER FEMALE
     Route: 065

REACTIONS (2)
  - Psychological trauma [Unknown]
  - Alopecia [Not Recovered/Not Resolved]

NARRATIVE: CASE EVENT DATE: 200807
